FAERS Safety Report 11445154 (Version 1)
Quarter: 2015Q3

REPORT INFORMATION
  Report Type: Spontaneous
  Country: US (occurrence: None)
  Receive Date: 20150901
  Receipt Date: 20150901
  Transmission Date: 20151125
  Serious: No
  Sender: FDA-Public Use
  Company Number: None

PATIENT
  Age: 65 Year
  Sex: Female
  Weight: 49.9 kg

DRUGS (4)
  1. ESTERIFIED ESTROGENS/METHYLTESTOSTERONE [Concomitant]
  2. BIOTIN [Concomitant]
     Active Substance: BIOTIN
  3. NAPROXEN SULFATE [Concomitant]
  4. ESOMEPRAZOLE MAGN DR [Suspect]
     Active Substance: ESOMEPRAZOLE MAGNESIUM
     Indication: GASTROOESOPHAGEAL REFLUX DISEASE
     Dosage: 1 PILL ONCE DAILY
     Route: 048
     Dates: start: 20150717, end: 20150831

REACTIONS (2)
  - Product substitution issue [None]
  - Drug effect decreased [None]
